FAERS Safety Report 14021941 (Version 1)
Quarter: 2017Q3

REPORT INFORMATION
  Report Type: Spontaneous
  Country: US (occurrence: US)
  Receive Date: 20170928
  Receipt Date: 20170928
  Transmission Date: 20171128
  Serious: Yes (Life-Threatening, Hospitalization)
  Sender: FDA-Public Use
  Company Number: None

PATIENT
  Age: 74 Year
  Sex: Female
  Weight: 61 kg

DRUGS (1)
  1. ELIQUIS [Suspect]
     Active Substance: APIXABAN
     Indication: ATRIAL FIBRILLATION
     Route: 048

REACTIONS (7)
  - Intentional product use issue [None]
  - Haemoglobin decreased [None]
  - Heart rate increased [None]
  - Fatigue [None]
  - Jaundice [None]
  - Haematocrit decreased [None]
  - Occult blood positive [None]

NARRATIVE: CASE EVENT DATE: 20170928
